FAERS Safety Report 14108101 (Version 1)
Quarter: 2017Q4

REPORT INFORMATION
  Report Type: Spontaneous
  Country: JP (occurrence: JP)
  Receive Date: 20171019
  Receipt Date: 20171019
  Transmission Date: 20180321
  Serious: Yes (Other)
  Sender: FDA-Public Use
  Company Number: JP-PFIZER INC-2017451054

PATIENT
  Age: 9 Decade
  Sex: Male

DRUGS (2)
  1. CELECOX [Suspect]
     Active Substance: CELECOXIB
     Indication: ARTHRALGIA
     Dosage: 100 MG, 2X/DAY (TWICE DAILY)
     Route: 048
  2. MOHRUS [Concomitant]
     Active Substance: KETOPROFEN
     Indication: LUMBAR HERNIA
     Dosage: UNK UNK, UNKNOWN FREQ.

REACTIONS (2)
  - Tooth abscess [Unknown]
  - Toothache [Unknown]
